FAERS Safety Report 12085013 (Version 1)
Quarter: 2016Q1

REPORT INFORMATION
  Report Type: Spontaneous
  Country: GB (occurrence: GB)
  Receive Date: 20160217
  Receipt Date: 20160217
  Transmission Date: 20160526
  Serious: Yes (Hospitalization)
  Sender: FDA-Public Use
  Company Number: GB-BIOGEN-2016BI00190101

PATIENT

DRUGS (1)
  1. TYSABRI [Suspect]
     Active Substance: NATALIZUMAB
     Indication: MULTIPLE SCLEROSIS
     Route: 042

REACTIONS (8)
  - Hot flush [Unknown]
  - Burning sensation [Unknown]
  - Diarrhoea [Unknown]
  - Dizziness [Unknown]
  - Infection [Unknown]
  - Erythema [Unknown]
  - Multiple sclerosis relapse [Unknown]
  - Arthropathy [Unknown]
